FAERS Safety Report 12707196 (Version 2)
Quarter: 2016Q3

REPORT INFORMATION
  Report Type: Spontaneous
  Country: FI (occurrence: FI)
  Receive Date: 20160901
  Receipt Date: 20160915
  Transmission Date: 20161109
  Serious: Yes (Hospitalization)
  Sender: FDA-Public Use
  Company Number: FI-B.I. PHARMACEUTICALS,INC./RIDGEFIELD-2016-BI-52808SF

PATIENT
  Age: 74 Year
  Sex: Male

DRUGS (9)
  1. PRADAXA [Suspect]
     Active Substance: DABIGATRAN ETEXILATE MESYLATE
     Dosage: 300 MG
     Route: 065
  2. PRADAXA [Suspect]
     Active Substance: DABIGATRAN ETEXILATE MESYLATE
     Indication: ATRIAL FIBRILLATION
     Dosage: 220 MG
     Route: 065
     Dates: start: 201204
  3. SOMAC [Concomitant]
     Active Substance: PANTOPRAZOLE SODIUM
     Indication: PRODUCT USED FOR UNKNOWN INDICATION
     Dosage: 40 MG
     Route: 065
  4. FURESIS [Concomitant]
     Active Substance: FUROSEMIDE
     Indication: PRODUCT USED FOR UNKNOWN INDICATION
     Dosage: 40 MG
     Route: 065
  5. PANADOL FORTE [Concomitant]
     Active Substance: ACETAMINOPHEN\CAFFEINE
     Indication: PRODUCT USED FOR UNKNOWN INDICATION
     Dosage: 3 G
     Route: 065
  6. ORMOX [Concomitant]
     Indication: PRODUCT USED FOR UNKNOWN INDICATION
     Dosage: 40 MG
     Route: 065
  7. BISOPROLOL [Concomitant]
     Active Substance: BISOPROLOL
     Indication: PRODUCT USED FOR UNKNOWN INDICATION
     Dosage: 15 MG
     Route: 065
  8. VESICARE [Concomitant]
     Active Substance: SOLIFENACIN SUCCINATE
     Indication: PRODUCT USED FOR UNKNOWN INDICATION
     Dosage: 5 MG
     Route: 065
  9. SIMVASTATIN. [Concomitant]
     Active Substance: SIMVASTATIN
     Indication: PRODUCT USED FOR UNKNOWN INDICATION
     Dosage: 10 MG
     Route: 065

REACTIONS (2)
  - Dyspepsia [Unknown]
  - Thrombosis [Not Recovered/Not Resolved]

NARRATIVE: CASE EVENT DATE: 20160318
